FAERS Safety Report 8553089-2 (Version None)
Quarter: 2012Q3

REPORT INFORMATION
  Report Type: 
  Country: None (occurrence: None)
  Receive Date: 20120731
  Receipt Date: 20120711
  Transmission Date: 20120928
  Serious: No
  Sender: FDA-Public Use
  Company Number: US-ASTRAZENECA-2012SE47943

PATIENT
  Age: 64 Year
  Sex: Female
  Weight: 97.5 kg

DRUGS (2)
  1. CRESTOR [Suspect]
     Route: 048
  2. CRESTOR [Suspect]
     Route: 048
     Dates: start: 20110101

REACTIONS (13)
  - MUSCULOSKELETAL DISCOMFORT [None]
  - MYALGIA [None]
  - BACK PAIN [None]
  - THYROID DISORDER [None]
  - KIDNEY INFECTION [None]
  - HYDRONEPHROSIS [None]
  - OEDEMA PERIPHERAL [None]
  - FIBROMYALGIA [None]
  - NIGHT SWEATS [None]
  - INTERVERTEBRAL DISC DEGENERATION [None]
  - PAIN IN EXTREMITY [None]
  - ABDOMINAL PAIN UPPER [None]
  - ARTHRALGIA [None]
